FAERS Safety Report 17338192 (Version 1)
Quarter: 2020Q1

REPORT INFORMATION
  Report Type: Spontaneous
  Country: CH (occurrence: CH)
  Receive Date: 20200129
  Receipt Date: 20200129
  Transmission Date: 20200409
  Serious: Yes (Hospitalization, Congenital Anomaly, Other)
  Sender: FDA-Public Use
  Company Number: CH-ABBVIE-20P-151-3253397-00

PATIENT
  Sex: Female

DRUGS (1)
  1. DEPAKINE [Suspect]
     Active Substance: VALPROATE SODIUM
     Indication: PRODUCT USED FOR UNKNOWN INDICATION
     Route: 064
     Dates: start: 1990

REACTIONS (5)
  - Cognitive disorder [Not Recovered/Not Resolved]
  - Cerebral haemorrhage neonatal [Recovered/Resolved with Sequelae]
  - Gastroschisis [Recovered/Resolved with Sequelae]
  - Psychomotor skills impaired [Not Recovered/Not Resolved]
  - Foetal exposure during pregnancy [Unknown]
